FAERS Safety Report 7425423-8 (Version None)
Quarter: 2011Q2

REPORT INFORMATION
  Report Type: 
  Country: None (occurrence: None)
  Receive Date: 20110420
  Receipt Date: 20110412
  Transmission Date: 20111010
  Serious: Yes (Hospitalization)
  Sender: FDA-Public Use
  Company Number: JP-ASTELLAS-2011JP001720

PATIENT
  Sex: Female
  Weight: 49.9 kg

DRUGS (7)
  1. PROGRAF [Suspect]
     Indication: INTERSTITIAL LUNG DISEASE
     Dosage: 1.5 MG, CONTINUOUS
     Route: 041
     Dates: start: 20091001, end: 20091007
  2. PREDNISOLONE [Suspect]
     Indication: INTERSTITIAL LUNG DISEASE
     Dosage: 20 MG, BID
     Route: 048
     Dates: start: 20091012, end: 20100311
  3. OMEPRAL [Concomitant]
     Indication: INTERSTITIAL LUNG DISEASE
     Dosage: 20 MG, UID/QD
     Route: 041
     Dates: start: 20091001, end: 20091010
  4. ELASPOL [Concomitant]
     Indication: INTERSTITIAL LUNG DISEASE
     Dosage: 240 MG, CONTINUOUS
     Route: 041
     Dates: start: 20091001, end: 20091002
  5. SOLU-MEDROL [Suspect]
     Indication: INTERSTITIAL LUNG DISEASE
     Dosage: 500 MG, BID
     Route: 041
     Dates: start: 20091001, end: 20091011
  6. PASIL [Concomitant]
     Indication: INTERSTITIAL LUNG DISEASE
     Dosage: 800 MG, BID
     Route: 041
     Dates: start: 20090928, end: 20091011
  7. PROGRAF [Suspect]
     Dosage: 0.5 MG, UID/QD
     Route: 048
     Dates: start: 20091008, end: 20100311

REACTIONS (2)
  - OFF LABEL USE [None]
  - PNEUMONIA FUNGAL [None]
